FAERS Safety Report 10642847 (Version 1)
Quarter: 2014Q4

REPORT INFORMATION
  Report Type: Spontaneous
  Country: None (occurrence: None)
  Receive Date: 20141209
  Receipt Date: 20141209
  Transmission Date: 20150529
  Serious: Yes (Disabling)
  Sender: FDA-Public Use
  Company Number: None

PATIENT
  Age: 65 Year
  Sex: Female
  Weight: 51.71 kg

DRUGS (1)
  1. POLYETHYLENE GLYCOL [Suspect]
     Active Substance: POLYETHYLENE GLYCOLS
     Indication: CONSTIPATION
     Dosage: 2-2 1/2 CAPS PER NIGHT AT BEDTIME ORAL MIX WITH 8 OZ WATER

REACTIONS (3)
  - Bladder pain [None]
  - Bladder irritation [None]
  - Abdominal pain [None]
